FAERS Safety Report 7349021-X (Version None)
Quarter: 2011Q1

REPORT INFORMATION
  Report Type: 
  Country: None (occurrence: None)
  Receive Date: 20110314
  Receipt Date: 20110307
  Transmission Date: 20110831
  Serious: Yes (Death, Life-Threatening, Hospitalization)
  Sender: FDA-Public Use
  Company Number: GR-US-EMD SERONO, INC.-7046160

PATIENT
  Age: 51 Year
  Sex: Female

DRUGS (2)
  1. MEDICATION FOR HYPERTENSION [Concomitant]
     Indication: HYPERTENSION
  2. REBIF [Suspect]
     Indication: MULTIPLE SCLEROSIS
     Route: 058
     Dates: start: 20080201

REACTIONS (1)
  - CEREBROVASCULAR ACCIDENT [None]
